FAERS Safety Report 10054716 (Version 1)
Quarter: 2014Q2

REPORT INFORMATION
  Report Type: Spontaneous
  Country: US (occurrence: US)
  Receive Date: 20140402
  Receipt Date: 20140402
  Transmission Date: 20141212
  Serious: No
  Sender: FDA-Public Use
  Company Number: US-AMGEN-USASP2014021170

PATIENT
  Age: 50 Year
  Sex: Female

DRUGS (1)
  1. ENBREL [Suspect]
     Indication: RHEUMATOID ARTHRITIS
     Dosage: 50 MG, QWK
     Route: 065
     Dates: start: 20090201, end: 20140310

REACTIONS (4)
  - Haemorrhoidal haemorrhage [Unknown]
  - Haematochezia [Unknown]
  - Abnormal faeces [Unknown]
  - Large intestine polyp [Recovered/Resolved]
